FAERS Safety Report 9305751 (Version 16)
Quarter: 2021Q3

REPORT INFORMATION
  Report Type: Spontaneous
  Country: US (occurrence: US)
  Receive Date: 20130523
  Receipt Date: 20210920
  Transmission Date: 20211014
  Serious: Yes (Other)
  Sender: FDA-Public Use
  Company Number: US-PFIZER INC-2013158628

PATIENT
  Age: 53 Year
  Sex: Male

DRUGS (7)
  1. LYRICA [Suspect]
     Active Substance: PREGABALIN
     Dosage: FOUR TIMES A DAY (REPORTED AS ^150 UNITS, 4 A DAY^)
  2. LYRICA [Suspect]
     Active Substance: PREGABALIN
     Indication: DIABETIC NEUROPATHY
     Dosage: 75 MG, THREE TIMES A DAY
     Route: 048
     Dates: start: 201303, end: 2013
  3. LYRICA [Suspect]
     Active Substance: PREGABALIN
     Dosage: 150 MG, FOUR TIMES A DAY
     Route: 048
  4. LYRICA [Suspect]
     Active Substance: PREGABALIN
     Dosage: 100 MG, THREE TIMES A DAY
  5. LYRICA [Suspect]
     Active Substance: PREGABALIN
     Dosage: 150 MG, 4 TIMES DAILY
     Route: 048
     Dates: start: 20190516
  6. LYRICA [Suspect]
     Active Substance: PREGABALIN
     Dosage: 150 MG, 1 CAPSULE FOUR TIMES A DAY (QID)
     Route: 048
  7. NEURONTIN [Concomitant]
     Active Substance: GABAPENTIN
     Dosage: UNK

REACTIONS (7)
  - Impaired work ability [Unknown]
  - Off label use [Unknown]
  - Nasopharyngitis [Unknown]
  - Bell^s palsy [Unknown]
  - Pain [Unknown]
  - Insomnia [Unknown]
  - Malaise [Unknown]

NARRATIVE: CASE EVENT DATE: 2013
